FAERS Safety Report 9063403 (Version 4)
Quarter: 2013Q2

REPORT INFORMATION
  Report Type: Spontaneous
  Country: CA (occurrence: CA)
  Receive Date: 20130213
  Receipt Date: 20130429
  Transmission Date: 20140414
  Serious: Yes (Hospitalization, Other)
  Sender: FDA-Public Use
  Company Number: PHHY2013CA013596

PATIENT
  Age: 69 Year
  Sex: Female

DRUGS (7)
  1. ACLASTA [Suspect]
     Indication: OSTEOPOROSIS
     Dosage: 5 MG/ 100 ML, ANNUALLY
     Route: 042
     Dates: start: 2008
  2. ACLASTA [Suspect]
     Dosage: 5 MG/ 100 ML, ANNUALLY
     Route: 042
     Dates: start: 2009
  3. ACLASTA [Suspect]
     Dosage: 5 MG/ 100 ML, ANNUALLY
     Route: 042
     Dates: start: 20100615
  4. ACLASTA [Suspect]
     Dosage: 5 MG / 100 ML, ANNUALLY
     Route: 042
     Dates: start: 2011
  5. ACLASTA [Suspect]
     Dosage: 5 MG / 100 ML, ANNUALLY
     Route: 042
     Dates: start: 20120820
  6. CIPRALEX//ESCITALOPRAM [Concomitant]
     Dosage: 20 MG, DAILY
  7. LITHIUM CARBONATE [Concomitant]
     Dosage: 300 MG, 4 HS

REACTIONS (4)
  - Fall [Recovered/Resolved with Sequelae]
  - Atypical femur fracture [Recovered/Resolved with Sequelae]
  - Drug ineffective [Unknown]
  - Arthralgia [Unknown]
